FAERS Safety Report 22696150 (Version 3)
Quarter: 2024Q1

REPORT INFORMATION
  Report Type: Report from Study
  Country: ZA (occurrence: ZA)
  Receive Date: 20230712
  Receipt Date: 20240213
  Transmission Date: 20240410
  Serious: Yes (Hospitalization, Other)
  Sender: FDA-Public Use
  Company Number: ZA-002147023-NVSC2023ZA154546

PATIENT
  Age: 88 Year
  Sex: Female

DRUGS (2)
  1. BROLUCIZUMAB [Suspect]
     Active Substance: BROLUCIZUMAB
     Indication: Neovascular age-related macular degeneration
     Dosage: 27.6 MG, QMO (27.6MG IN 0.23ML)
     Route: 047
     Dates: start: 20230523
  2. BROLUCIZUMAB [Suspect]
     Active Substance: BROLUCIZUMAB
     Dosage: 27.6 MG, QMO (27.6MG IN 0.23ML)
     Route: 047
     Dates: start: 20230524

REACTIONS (5)
  - Fall [Unknown]
  - Hip fracture [Not Recovered/Not Resolved]
  - Foot fracture [Not Recovered/Not Resolved]
  - Ankle fracture [Not Recovered/Not Resolved]
  - Pelvic fracture [Not Recovered/Not Resolved]
